FAERS Safety Report 10190045 (Version 1)
Quarter: 2014Q2

REPORT INFORMATION
  Report Type: Report from Study
  Country: FR (occurrence: FR)
  Receive Date: 20140522
  Receipt Date: 20140522
  Transmission Date: 20141212
  Serious: Yes (Hospitalization)
  Sender: FDA-Public Use
  Company Number: PHHO2014FR007426

PATIENT
  Sex: 0

DRUGS (4)
  1. PROGRAF [Suspect]
     Indication: LIVER TRANSPLANT
     Dosage: 1 MG, BID
     Route: 048
     Dates: start: 20131205
  2. MYFORTIC [Suspect]
     Indication: LIVER TRANSPLANT
     Dosage: 180 MG, BID
     Route: 048
     Dates: start: 20131203
  3. CORTANCYL [Concomitant]
     Indication: PROPHYLAXIS
     Dosage: 3 MG, UNK
     Route: 048
     Dates: start: 20131203, end: 20140512
  4. ROVALCYTE [Concomitant]
     Indication: PROPHYLAXIS
     Dosage: 900 MG, UNK
     Route: 048
     Dates: start: 20140423, end: 20140512

REACTIONS (4)
  - Jaundice [Not Recovered/Not Resolved]
  - Ascites [Unknown]
  - Renal failure [Not Recovered/Not Resolved]
  - Abdominal pain [Not Recovered/Not Resolved]
